FAERS Safety Report 4774799-9 (Version None)
Quarter: 2005Q3

REPORT INFORMATION
  Report Type: 
  Country: None (occurrence: None)
  Receive Date: 20050919
  Receipt Date: 20050906
  Transmission Date: 20060218
  Serious: Yes (Other)
  Sender: FDA-Public Use
  Company Number: 2005125135

PATIENT
  Sex: Male
  Weight: 104.3273 kg

DRUGS (3)
  1. VIAGRA [Suspect]
     Indication: ERECTILE DYSFUNCTION
     Dosage: 5 OR 6 YEARS AGO
  2. BENADRYL [Suspect]
     Indication: NASAL CONGESTION
  3. VACCINIUM MACROCARPON (VACCINIUM MACROCARPON) [Concomitant]

REACTIONS (8)
  - BLOOD TESTOSTERONE DECREASED [None]
  - DYSPNOEA [None]
  - INSOMNIA [None]
  - LIBIDO DECREASED [None]
  - NASAL CONGESTION [None]
  - POLYCYTHAEMIA VERA [None]
  - SINUS HEADACHE [None]
  - SLEEP APNOEA SYNDROME [None]
